FAERS Safety Report 5919466-0 (Version None)
Quarter: 2008Q4

REPORT INFORMATION
  Report Type: 
  Country: None (occurrence: None)
  Receive Date: 20081015
  Receipt Date: 20081010
  Transmission Date: 20090506
  Serious: Yes (Hospitalization, Other)
  Sender: FDA-Public Use
  Company Number: PHBS2008MX06006

PATIENT
  Age: 26 Year
  Sex: Female

DRUGS (7)
  1. METOPROLOL TARTRATE [Suspect]
  2. DIGOXIN [Suspect]
  3. FRUSEMIDE [Suspect]
  4. ACETYLSALICYLIC ACID SRT [Suspect]
  5. POTASSIUM CHLORIDE [Suspect]
  6. HEPARIN [Suspect]
  7. OXYGEN [Concomitant]

REACTIONS (18)
  - AMNIOTIC FLUID VOLUME DECREASED [None]
  - ANOMALOUS PULMONARY VENOUS CONNECTION [None]
  - ATRIAL SEPTAL DEFECT [None]
  - CAESAREAN SECTION [None]
  - CARDIAC FAILURE [None]
  - DILATATION VENTRICULAR [None]
  - DRUG EXPOSURE DURING PREGNANCY [None]
  - ECHOCARDIOGRAM [None]
  - EJECTION FRACTION DECREASED [None]
  - FEMALE STERILISATION [None]
  - FOETAL GROWTH RETARDATION [None]
  - LEFT VENTRICULAR FAILURE [None]
  - OLIGOHYDRAMNIOS [None]
  - PLACENTAL DISORDER [None]
  - PREMATURE BABY [None]
  - PULMONARY VALVE STENOSIS [None]
  - RIGHT VENTRICULAR FAILURE [None]
  - SHUNT BLOOD FLOW EXCESSIVE [None]
